FAERS Safety Report 9358921 (Version 1)
Quarter: 2013Q2

REPORT INFORMATION
  Report Type: Spontaneous
  Country: PH (occurrence: PH)
  Receive Date: 20130620
  Receipt Date: 20130620
  Transmission Date: 20140414
  Serious: Yes (Hospitalization, Other)
  Sender: FDA-Public Use
  Company Number: PH-MERCK-1306PHL009116

PATIENT
  Age: 71 Year
  Sex: Male

DRUGS (1)
  1. COZAAR [Suspect]
     Dosage: ONE TABLET ONCE A DAY
     Route: 048
     Dates: end: 201306

REACTIONS (1)
  - Bladder cancer [Unknown]
